FAERS Safety Report 4490100-2 (Version None)
Quarter: 2004Q4

REPORT INFORMATION
  Report Type: 
  Country: None (occurrence: None)
  Receive Date: 20041028
  Receipt Date: 20041018
  Transmission Date: 20050328
  Serious: Yes (Hospitalization)
  Sender: FDA-Public Use
  Company Number: 2004UW21718

PATIENT
  Age: 22 Year
  Sex: Male

DRUGS (8)
  1. SEROQUEL [Suspect]
     Indication: SCHIZOPHRENIA
     Dosage: 450 MG DAILY PO
     Route: 048
     Dates: end: 20031231
  2. SEROQUEL [Suspect]
     Indication: SCHIZOPHRENIA
     Dosage: 800 MG DAILY PO
     Route: 048
  3. SEROQUEL [Suspect]
     Indication: SCHIZOPHRENIA
     Dosage: 1000 MG DAILY PO
     Route: 048
  4. PROLIXIN [Suspect]
  5. ABILIFY [Suspect]
  6. RISPERDAL [Concomitant]
  7. HALDOL [Concomitant]
  8. ZYPREXA [Concomitant]

REACTIONS (5)
  - DRUG INEFFECTIVE [None]
  - HEADACHE [None]
  - HEART RATE INCREASED [None]
  - MUSCLE RIGIDITY [None]
  - SCHIZOPHRENIA [None]
